FAERS Safety Report 7244103-5 (Version None)
Quarter: 2011Q1

REPORT INFORMATION
  Report Type: 
  Country: None (occurrence: None)
  Receive Date: 20110119
  Receipt Date: 20110119
  Transmission Date: 20110831
  Serious: Yes (Life-Threatening, Other)
  Sender: FDA-Public Use
  Company Number: None

PATIENT
  Age: 59 Year
  Sex: Female
  Weight: 102.0593 kg

DRUGS (1)
  1. TRAMADOL HYDROCHLORIDE [Suspect]
     Indication: PAIN
     Dosage: 2 TABLETS 4 TIMES OR PRN/DAY PO
     Route: 048
     Dates: start: 20101222, end: 20101231

REACTIONS (3)
  - SUICIDAL IDEATION [None]
  - ANXIETY [None]
  - MOOD ALTERED [None]
